FAERS Safety Report 9439158 (Version 1)
Quarter: 2013Q3

REPORT INFORMATION
  Report Type: Spontaneous
  Country: US (occurrence: US)
  Receive Date: 20130802
  Receipt Date: 20130802
  Transmission Date: 20140515
  Serious: Yes (Other)
  Sender: FDA-Public Use
  Company Number: US-AMGEN-USASP2013046595

PATIENT
  Age: 19 Year
  Sex: Male

DRUGS (1)
  1. EPOGEN [Suspect]
     Indication: NEPHROGENIC ANAEMIA
     Dosage: 20000 UNIT/ML
     Route: 065
     Dates: start: 201210

REACTIONS (7)
  - Cardiac disorder [Unknown]
  - Haemoglobin decreased [Unknown]
  - Incorrect product storage [Unknown]
  - Hormone level abnormal [Unknown]
  - Heart rate increased [Unknown]
  - Red blood cell count decreased [Unknown]
  - Activities of daily living impaired [Unknown]
